FAERS Safety Report 8433582-3 (Version None)
Quarter: 2012Q2

REPORT INFORMATION
  Report Type: 
  Country: None (occurrence: None)
  Receive Date: 20120613
  Receipt Date: 20120606
  Transmission Date: 20120825
  Serious: Yes (Congenital Anomaly)
  Sender: FDA-Public Use
  Company Number: GB-UCBSA-037630

PATIENT

DRUGS (1)
  1. LEVETIRACETAM [Suspect]
     Route: 064

REACTIONS (3)
  - TALIPES [None]
  - HAEMANGIOMA OF SKIN [None]
  - FOETAL EXPOSURE DURING PREGNANCY [None]
